FAERS Safety Report 5391142-5 (Version None)
Quarter: 2007Q3

REPORT INFORMATION
  Report Type: 
  Country: None (occurrence: None)
  Receive Date: 20070719
  Receipt Date: 20070717
  Transmission Date: 20080115
  Serious: Yes (Hospitalization)
  Sender: FDA-Public Use
  Company Number: AR-BRISTOL-MYERS SQUIBB COMPANY-13849369

PATIENT
  Age: 56 Year
  Sex: Female

DRUGS (8)
  1. ABATACEPT [Suspect]
     Indication: RHEUMATOID ARTHRITIS
     Route: 042
     Dates: start: 20070306
  2. METHOTREXATE [Concomitant]
     Dates: start: 20031223
  3. ASPIRIN [Concomitant]
     Dates: start: 20031226
  4. DICLOFENAC [Concomitant]
     Dates: start: 20040316
  5. AMITRIPTYLINE HCL [Concomitant]
     Dates: start: 20010531
  6. FOLIC ACID [Concomitant]
     Dates: start: 20010531
  7. RANITIDINE [Concomitant]
     Dates: start: 20060614
  8. BETAMETHASONE [Concomitant]
     Dates: start: 20070627

REACTIONS (2)
  - ABDOMINAL WALL ABSCESS [None]
  - HERNIAL EVENTRATION [None]
